FAERS Safety Report 7834043-2 (Version None)
Quarter: 2011Q4

REPORT INFORMATION
  Report Type: 
  Country: None (occurrence: None)
  Receive Date: 20111024
  Receipt Date: 20111024
  Transmission Date: 20120403
  Serious: No
  Sender: FDA-Public Use
  Company Number: None

PATIENT
  Age: 55 Year
  Sex: Female
  Weight: 111 kg

DRUGS (1)
  1. CUBICIN [Suspect]
     Indication: WOUND INFECTION
     Dosage: 670 MG
     Route: 051
     Dates: start: 20111020, end: 20111020

REACTIONS (1)
  - DEAFNESS [None]
